FAERS Safety Report 23693267 (Version 1)
Quarter: 2024Q2

REPORT INFORMATION
  Report Type: Spontaneous
  Country: US (occurrence: US)
  Receive Date: 20240401
  Receipt Date: 20240401
  Transmission Date: 20240715
  Serious: Yes (Hospitalization)
  Sender: FDA-Public Use
  Company Number: US-MYLANLABS-2024M1028726

PATIENT
  Age: 28 Year
  Sex: Male

DRUGS (2)
  1. ZONISAMIDE [Suspect]
     Active Substance: ZONISAMIDE
     Indication: Epilepsy
     Dosage: UNK
     Route: 065
  2. POTASSIUM [Suspect]
     Active Substance: POTASSIUM
     Indication: Hypokalaemia
     Dosage: UNK
     Route: 065

REACTIONS (4)
  - Renal tubular acidosis [Recovering/Resolving]
  - Hypokalaemia [Recovered/Resolved]
  - Rhabdomyolysis [Recovering/Resolving]
  - Drug ineffective [Unknown]
